FAERS Safety Report 13688928 (Version 1)
Quarter: 2017Q2

REPORT INFORMATION
  Report Type: Spontaneous
  Country: FR (occurrence: FR)
  Receive Date: 20170626
  Receipt Date: 20170626
  Transmission Date: 20170830
  Serious: Yes (Hospitalization)
  Sender: FDA-Public Use
  Company Number: FR-BAYER-2017-116795

PATIENT
  Age: 31 Year
  Sex: Female

DRUGS (1)
  1. JAYDESS [Suspect]
     Active Substance: LEVONORGESTREL
     Indication: CONTRACEPTION
     Dosage: 14 MCG/24HR, CONT
     Route: 015
     Dates: start: 20151010, end: 20170515

REACTIONS (8)
  - Hypotension [Recovered/Resolved]
  - Abdominal distension [Recovered/Resolved]
  - Device expulsion [Recovered/Resolved]
  - Vertigo [Recovered/Resolved]
  - Panic attack [Recovered/Resolved]
  - Depression [Recovering/Resolving]
  - Fatigue [Recovered/Resolved]
  - Irritability [Recovered/Resolved]

NARRATIVE: CASE EVENT DATE: 20151010
